FAERS Safety Report 5784741-X (Version None)
Quarter: 2008Q2

REPORT INFORMATION
  Report Type: 
  Country: None (occurrence: None)
  Receive Date: 20080605
  Receipt Date: 20080508
  Transmission Date: 20081010
  Serious: No
  Sender: FDA-Public Use
  Company Number: A0722507A

PATIENT
  Sex: Female

DRUGS (1)
  1. ALLI [Suspect]

REACTIONS (14)
  - ABDOMINAL PAIN UPPER [None]
  - DRUG INEFFECTIVE [None]
  - EATING DISORDER [None]
  - FATIGUE [None]
  - FEELING HOT [None]
  - FLUID RETENTION [None]
  - FOOD CRAVING [None]
  - HYPERHIDROSIS [None]
  - INSOMNIA [None]
  - MUSCULOSKELETAL DISCOMFORT [None]
  - NIGHT SWEATS [None]
  - NONSPECIFIC REACTION [None]
  - PREMENSTRUAL SYNDROME [None]
  - WEIGHT FLUCTUATION [None]
